FAERS Safety Report 5055245-7 (Version None)
Quarter: 2006Q3

REPORT INFORMATION
  Report Type: 
  Country: None (occurrence: None)
  Receive Date: 20060714
  Receipt Date: 20060628
  Transmission Date: 20061208
  Serious: Yes (Other)
  Sender: FDA-Public Use
  Company Number: 2006082611

PATIENT
  Age: 79 Year
  Sex: Female

DRUGS (1)
  1. CABERGOLINE [Suspect]
     Indication: PARKINSONISM

REACTIONS (3)
  - CARDIAC FAILURE ACUTE [None]
  - DILATATION VENTRICULAR [None]
  - MITRAL VALVE INCOMPETENCE [None]
